FAERS Safety Report 24636318 (Version 2)
Quarter: 2025Q3

REPORT INFORMATION
  Report Type: Report from Study
  Country: CA (occurrence: CA)
  Receive Date: 20241119
  Receipt Date: 20250803
  Transmission Date: 20251021
  Serious: Yes (Other)
  Sender: ALEXION PHARMACEUTICALS
  Company Number: CA-AstraZeneca-CH-00747843A

PATIENT
  Sex: Female

DRUGS (3)
  1. FASENRA [Suspect]
     Active Substance: BENRALIZUMAB
     Indication: Asthma
  2. VITAMIN D [Concomitant]
     Active Substance: VITAMIN D NOS
     Route: 065
  3. ZENHALE [Concomitant]
     Active Substance: FORMOTEROL FUMARATE\MOMETASONE FUROATE

REACTIONS (3)
  - Blood parathyroid hormone increased [Recovering/Resolving]
  - Vitamin D deficiency [Recovering/Resolving]
  - Dysgeusia [Not Recovered/Not Resolved]
